FAERS Safety Report 25401307 (Version 4)
Quarter: 2025Q2

REPORT INFORMATION
  Report Type: Spontaneous
  Country: GB (occurrence: GB)
  Receive Date: 20250605
  Receipt Date: 20250630
  Transmission Date: 20250717
  Serious: Yes (Hospitalization)
  Sender: MYLAN
  Company Number: GB-MYLANLABS-2025M1046632

PATIENT
  Age: 28 Year
  Sex: Male
  Weight: 109.2 kg

DRUGS (13)
  1. CLOZARIL [Suspect]
     Active Substance: CLOZAPINE
     Indication: Schizophrenia
     Dosage: UNK, BID (IN 2 DIVIDED DOSES 100MG, 125MG)
     Dates: start: 20250318, end: 20250523
  2. POLYETHYLENE GLYCOLS [Concomitant]
     Active Substance: POLYETHYLENE GLYCOLS
     Indication: Constipation
     Dosage: 1 DOSAGE FORM, BID (NPF SUGAR FREE, ONE SACHET, TWICE DAILY)
     Dates: start: 20250416
  3. SENNA [Concomitant]
     Active Substance: SENNOSIDES
     Indication: Constipation
     Dosage: 15 MILLIGRAM, QD (ONCE DAILY)
     Dates: start: 20250417
  4. DOCUSATE SODIUM [Concomitant]
     Active Substance: DOCUSATE SODIUM
     Indication: Constipation
     Dosage: 200 MILLIGRAM, QD (ONCE DAILY)
  5. LACTULOSE [Concomitant]
     Active Substance: LACTULOSE
     Indication: Constipation
     Dosage: 15 MILLILITER, BID (3.35G IN 5ML, TWICE DAILY)
     Dates: start: 20250327
  6. NAPROXEN [Concomitant]
     Active Substance: NAPROXEN
     Indication: Pain
     Dosage: 500 MILLIGRAM, BID (TWICE DAILY)
     Dates: start: 20250516, end: 20250521
  7. LORATADINE [Concomitant]
     Active Substance: LORATADINE
     Indication: Antiallergic therapy
     Dosage: 10 MILLIGRAM, QD (ONCE DAILY)
     Dates: start: 20250502, end: 20250530
  8. SCOPOLAMINE HYDROBROMIDE [Concomitant]
     Active Substance: SCOPOLAMINE HYDROBROMIDE
     Indication: Salivary hypersecretion
     Dosage: 300 MILLIGRAM, TID (THREE TIMES A DAY)
     Dates: start: 20250407, end: 20250602
  9. FOLIC ACID [Concomitant]
     Active Substance: FOLIC ACID
     Indication: Hypovitaminosis
     Dosage: 5 MILLIGRAM, QD (ONCE DAILY)
     Dates: start: 20250310
  10. CHOLECALCIFEROL [Concomitant]
     Active Substance: CHOLECALCIFEROL
     Indication: Hypovitaminosis
     Dosage: UNK, QD (800 UNITS ONCE DAILY)
     Dates: start: 20250310
  11. NICORETTE [Concomitant]
     Active Substance: NICOTINE
     Indication: Tobacco abuse
  12. CHLORHEXIDINE GLUCONATE [Concomitant]
     Active Substance: CHLORHEXIDINE GLUCONATE
     Indication: Dental disorder prophylaxis
     Dosage: 10 MILLILITER, BID (TWICE DAILY)
     Dates: start: 20250307
  13. ACETAMINOPHEN [Concomitant]
     Active Substance: ACETAMINOPHEN
     Indication: Analgesic therapy

REACTIONS (4)
  - C-reactive protein increased [Recovered/Resolved]
  - Tooth infection [Recovered/Resolved]
  - Pyrexia [Recovered/Resolved]
  - Tachycardia [Recovering/Resolving]

NARRATIVE: CASE EVENT DATE: 20250101
